FAERS Safety Report 7245499-0 (Version None)
Quarter: 2011Q1

REPORT INFORMATION
  Report Type: 
  Country: None (occurrence: None)
  Receive Date: 20110126
  Receipt Date: 20110111
  Transmission Date: 20110831
  Serious: Yes (Life-Threatening)
  Sender: FDA-Public Use
  Company Number: DE-PFIZER INC-2010019339

PATIENT
  Age: 34 Year
  Sex: Male

DRUGS (104)
  1. HEPARIN SODIUM [Suspect]
     Indication: THROMBOSIS PROPHYLAXIS
     Dosage: UNK
     Route: 042
     Dates: start: 20070515, end: 20070602
  2. POTASSIUM CHLORIDE [Suspect]
     Dosage: UNK
     Route: 042
     Dates: start: 20070515, end: 20070520
  3. CONTRAST MEDIA [Suspect]
     Dosage: UNK
     Route: 042
     Dates: start: 20070523, end: 20070523
  4. VITAMIN B6 [Suspect]
     Indication: SUPPLEMENTATION THERAPY
     Dosage: UNK
     Route: 042
     Dates: start: 20070514, end: 20070514
  5. CATAPRESAN [Suspect]
     Indication: WITHDRAWAL SYNDROME
     Dosage: UNK
     Route: 042
     Dates: start: 20070523, end: 20070604
  6. HALDOL [Suspect]
     Indication: ALCOHOL WITHDRAWAL SYNDROME
     Dosage: STARTING WITH 5 MG, THRICE DAILY, CONTINUED  WITH 5 MG TWICE DAILY
     Route: 042
     Dates: start: 20070526, end: 20070605
  7. ALT-INSULIN [Suspect]
     Indication: HYPERGLYCAEMIA
     Dosage: UNK
     Route: 058
     Dates: start: 20070603, end: 20070604
  8. KALINOR-BRAUSETABLETTEN [Suspect]
     Indication: SUPPLEMENTATION THERAPY
     Dosage: UNK
     Route: 048
     Dates: start: 20070603, end: 20070605
  9. CLEXANE [Suspect]
     Indication: THROMBOSIS PROPHYLAXIS
     Dosage: 40 MG, 1X/DAY
     Route: 058
     Dates: start: 20070603
  10. MEROPENEM [Suspect]
     Indication: PANCREATITIS
     Dosage: 1 G, 3X/DAY
     Route: 042
     Dates: start: 20070604
  11. NEOSTIGMINE [Concomitant]
     Indication: PANCREATITIS
     Dosage: UNK
     Route: 042
     Dates: start: 20070518, end: 20070522
  12. TAZOBAC [Suspect]
     Dosage: 4.5 G, 3X/DAY
     Route: 042
     Dates: start: 20070531, end: 20070603
  13. PANTOZOL [Suspect]
     Indication: PROPHYLAXIS AGAINST GASTROINTESTINAL ULCER
     Dosage: 40 MG, 2X/DAY
     Route: 042
     Dates: start: 20070523, end: 20070605
  14. PANTOZOL [Suspect]
     Dosage: 40 MG, 2X/DAY
     Route: 048
     Dates: start: 20070606
  15. METOCLOPRAMIDE HYDROCHLORIDE [Suspect]
     Indication: NAUSEA
     Dosage: UNK
     Route: 042
     Dates: start: 20070523, end: 20070605
  16. NOVALGIN [Suspect]
     Dosage: 2.5 G IN THE MORNING, 1 G IN THE EVENING
     Route: 042
     Dates: start: 20070530, end: 20070530
  17. RINGER LOSUNG [Suspect]
     Dosage: UNK
     Route: 042
     Dates: start: 20070602, end: 20070602
  18. VITAMIN B1 TAB [Suspect]
     Indication: SUPPLEMENTATION THERAPY
     Dosage: UNK
     Route: 042
     Dates: start: 20070516
  19. HEPARIN [Concomitant]
     Indication: THROMBOSIS PROPHYLAXIS
     Dosage: UNK
     Route: 058
     Dates: start: 20070514, end: 20070515
  20. HETASTARCH IN SODIUM CHLORIDE [Concomitant]
     Indication: SUPPLEMENTATION THERAPY
     Dosage: 6 %
     Route: 042
     Dates: start: 20070514, end: 20070515
  21. TUTOFUSIN BG [Concomitant]
     Indication: SUPPLEMENTATION THERAPY
     Dosage: 500 MG, UNK
     Route: 042
     Dates: start: 20070513, end: 20070513
  22. GLUCOSE [Concomitant]
     Dosage: 5 %
     Route: 042
     Dates: start: 20070514, end: 20070522
  23. CIPRO [Concomitant]
     Indication: PANCREATITIS
     Dosage: 200 MG, 2X/DAY
     Route: 042
     Dates: start: 20070517, end: 20070522
  24. INSULIN HUMAN [Suspect]
     Dosage: UNK
     Route: 042
     Dates: start: 20070515
  25. KETAMINE HYDROCHLORIDE [Suspect]
     Dosage: UNK
     Route: 042
     Dates: start: 20070523, end: 20070529
  26. POTASSIUM CHLORIDE [Suspect]
     Dosage: UNK
     Route: 042
     Dates: start: 20070523, end: 20070602
  27. UNIZINK [Suspect]
     Indication: SUPPLEMENTATION THERAPY
     Dosage: ONCE DAILY
     Route: 042
     Dates: start: 20070523
  28. GASTROGRAFIN [Suspect]
     Dosage: UNK
     Route: 042
     Dates: start: 20070529, end: 20070529
  29. PARACETAMOL [Suspect]
     Dosage: 1 G, UNK
     Route: 042
     Dates: start: 20070603, end: 20070603
  30. FUROSEMIDE [Concomitant]
     Dosage: 20 MG, 2X/DAY
     Route: 048
     Dates: start: 20070514, end: 20070515
  31. DISTRANEURIN [Concomitant]
     Indication: WITHDRAWAL SYNDROME
     Dosage: EVERY 4 HOURS
     Route: 048
     Dates: start: 20070514, end: 20070515
  32. CLONIDINE [Concomitant]
     Dosage: UNK
     Route: 042
     Dates: start: 20070516, end: 20070521
  33. NEXIUM [Concomitant]
     Indication: PROPHYLAXIS AGAINST GASTROINTESTINAL ULCER
     Dosage: STARTING WITH 40 MG, 2X/DAY, CONTINUED WITH 40 MG/, 1X/DAY
     Route: 042
     Dates: start: 20070513, end: 20070522
  34. ARTERENOL [Concomitant]
     Indication: PROPHYLAXIS
     Dosage: UNK
     Route: 042
     Dates: start: 20070514, end: 20070519
  35. PROPOFOL [Concomitant]
     Indication: SEDATION
     Dosage: UNK
     Route: 042
     Dates: start: 20070515, end: 20070516
  36. LIPOFUNDIN [Concomitant]
     Dosage: UNK
     Route: 042
     Dates: start: 20070518, end: 20070521
  37. ETOMIDATE [Concomitant]
     Indication: SEDATION
     Dosage: 5 MG, 4X/DAY
     Route: 042
     Dates: start: 20070523, end: 20070523
  38. VITAMIN B-12 [Concomitant]
     Indication: SUPPLEMENTATION THERAPY
     Dosage: UNK
     Route: 042
     Dates: start: 20070523, end: 20070524
  39. FUROSEMIDE [Suspect]
     Indication: POLYURIA
     Dosage: UNK
     Route: 042
     Dates: start: 20070515, end: 20070520
  40. SODIUM CHLORIDE [Suspect]
     Dosage: 0.9 %
     Route: 042
     Dates: start: 20070514, end: 20070515
  41. FOLATE [Suspect]
     Dosage: UNK
     Route: 042
     Dates: start: 20070523
  42. GASTROGRAFIN [Suspect]
     Indication: ENDOSCOPY UPPER GASTROINTESTINAL TRACT
     Dosage: UNK
     Route: 042
     Dates: start: 20070524, end: 20070524
  43. PARACETAMOL [Suspect]
     Indication: PYREXIA
     Dosage: 1 G, UNK
     Route: 042
     Dates: start: 20070526, end: 20070527
  44. PARACETAMOL [Suspect]
     Dosage: 1 G, UNK
     Route: 042
     Dates: start: 20070529, end: 20070529
  45. ALT-INSULIN [Concomitant]
     Dosage: UNK
     Route: 042
     Dates: start: 20070514, end: 20070514
  46. CALCIUM POLYSTYRENE SULFONATE [Concomitant]
     Indication: HYPERKALAEMIA
     Dosage: 2 SACHETS
     Route: 048
     Dates: start: 20070514, end: 20070514
  47. SODIUM BICARBONATE [Concomitant]
     Indication: SUPPLEMENTATION THERAPY
     Dosage: 8.4 %
     Route: 042
     Dates: start: 20070514, end: 20070515
  48. CALCIUM [Concomitant]
     Dosage: ONCE DAILY
     Route: 048
     Dates: start: 20070601
  49. MIDAZOLAM [Concomitant]
     Indication: SEDATION
     Dosage: UNK
     Route: 042
     Dates: start: 20070515, end: 20070515
  50. MORPHINE [Concomitant]
     Indication: PAIN
     Dosage: 10 MG
     Route: 042
     Dates: start: 20070520, end: 20070520
  51. PANCURONIUM [Concomitant]
     Indication: RELAXATION THERAPY
     Dosage: UNK
     Route: 042
     Dates: start: 20070522, end: 20070522
  52. FUROSEMIDE [Suspect]
     Dosage: UNK
     Route: 042
     Dates: start: 20070523, end: 20070525
  53. SODIUM CHLORIDE [Suspect]
     Dosage: 0.9 %
     Route: 042
     Dates: start: 20070523, end: 20070530
  54. CONTRAST MEDIA [Suspect]
     Dosage: UNK
     Route: 042
     Dates: start: 20070531, end: 20070531
  55. SUFENTANIL [Suspect]
     Indication: SEDATION
     Dosage: UNK
     Route: 042
     Dates: start: 20070515, end: 20070516
  56. MOVICOL [Suspect]
     Indication: CONSTIPATION
     Dosage: 1 SACHET EVERY EVENING
     Route: 048
     Dates: start: 20070518, end: 20070523
  57. MOVICOL [Suspect]
     Dosage: 1 SACHET EVERY EVENING
     Route: 048
     Dates: start: 20070530, end: 20070604
  58. INZOLEN [Suspect]
     Indication: SUPPLEMENTATION THERAPY
     Dosage: ONCE DAILY
     Route: 042
     Dates: start: 20070523
  59. CERNEVIT-12 [Suspect]
     Indication: SUPPLEMENTATION THERAPY
     Dosage: ONCE DAILY
     Route: 042
     Dates: start: 20070523
  60. RIVOTRIL [Suspect]
     Indication: RESTLESSNESS
     Dosage: UNK
     Route: 042
     Dates: start: 20070531, end: 20070531
  61. GLUCOSE [Suspect]
     Indication: SUPPLEMENTATION THERAPY
     Dosage: UNK
     Route: 042
     Dates: start: 20070603
  62. CLONIDINE [Concomitant]
     Indication: WITHDRAWAL SYNDROME
     Dosage: UNK
     Route: 042
     Dates: start: 20070514, end: 20070514
  63. ARTERENOL [Concomitant]
     Dosage: UNK
     Route: 042
     Dates: start: 20070523, end: 20070524
  64. CALCIUM [Concomitant]
     Indication: SUPPLEMENTATION THERAPY
     Dosage: UNK
     Route: 042
     Dates: start: 20070515, end: 20070522
  65. INTRAFUSIN [Concomitant]
     Indication: SUPPLEMENTATION THERAPY
     Dosage: UNK
     Route: 042
     Dates: start: 20070518, end: 20070522
  66. SODIUM CHLORIDE [Concomitant]
     Indication: SUPPLEMENTATION THERAPY
     Dosage: 10 %
     Route: 042
     Dates: start: 20070522, end: 20070522
  67. HYDROCORTISONE SODIUM SUCCINATE [Suspect]
     Indication: PROPHYLAXIS
     Dosage: 100 MG, UNK
     Route: 042
     Dates: start: 20070523, end: 20070602
  68. KETAMINE HYDROCHLORIDE [Suspect]
     Indication: SEDATION
     Dosage: UNK
     Route: 042
     Dates: start: 20070515, end: 20070521
  69. SODIUM CHLORIDE [Suspect]
     Dosage: 0.9 %
     Route: 042
     Dates: start: 20070602, end: 20070602
  70. RINGER LOSUNG [Suspect]
     Dosage: UNK
     Route: 042
     Dates: start: 20070523, end: 20070530
  71. MAGNESIUM [Concomitant]
     Dosage: ONCE DAILY
     Route: 048
     Dates: start: 20070601
  72. ASCORBIC ACID [Concomitant]
     Dosage: ONCE DAILY
     Dates: start: 20070601
  73. GLUCOSE [Concomitant]
     Dosage: 20 %
     Route: 042
     Dates: start: 20070524, end: 20070524
  74. VITAMIN B1 TAB [Concomitant]
     Dosage: 200 MG, 1X/DAY
     Route: 048
     Dates: start: 20070515, end: 20070515
  75. LACTULOSE [Concomitant]
     Indication: CONSTIPATION
     Dosage: 20 ML, 3X/DAY
     Route: 048
     Dates: start: 20070515, end: 20070522
  76. BRICANYL [Concomitant]
     Indication: DYSPNOEA
     Dosage: ONCE DAILY
     Route: 058
     Dates: start: 20070523, end: 20070523
  77. EBRANTIL [Concomitant]
     Indication: HYPERTENSION
     Dosage: UNK
     Route: 042
     Dates: start: 20070525, end: 20070525
  78. ENALAPRIL MALEATE [Concomitant]
     Indication: HYPERTENSION
     Dosage: UNK
     Route: 042
     Dates: start: 20070526, end: 20070526
  79. ZITHROMAX [Suspect]
     Indication: PANCREATITIS
     Dosage: 500 MG/DAY
     Route: 042
     Dates: start: 20070530, end: 20070601
  80. FLUCONAZOLE [Suspect]
     Indication: PANCREATITIS
     Dosage: 800 MG, 1X/DAY
     Route: 042
     Dates: start: 20070523, end: 20070603
  81. NOVALGIN [Suspect]
     Indication: PAIN
     Dosage: 2.5 G IN THE MORNING, 1 G IN THE EVENING
     Route: 042
     Dates: start: 20070514, end: 20070514
  82. DORMICUM FOR INJECTION [Suspect]
     Indication: SUPPLEMENTATION THERAPY
     Dosage: UNK
     Route: 042
     Dates: start: 20070516, end: 20070529
  83. DIPIDOLOR [Concomitant]
     Indication: PAIN
     Dosage: 5 MG, 4X/DAY
     Route: 042
     Dates: start: 20070514, end: 20070515
  84. ROCEPHIN [Concomitant]
     Indication: PANCREATITIS
     Dosage: 2 G, 1X/DAY
     Route: 042
     Dates: start: 20070513, end: 20070516
  85. LAXOBERAL [Concomitant]
     Indication: CONSTIPATION
     Dosage: 20 GTT, 1X/DAY
     Route: 048
     Dates: start: 20070515, end: 20070522
  86. TAVOR [Suspect]
     Dosage: UNK
     Route: 042
     Dates: start: 20070603
  87. FUROSEMIDE [Suspect]
     Dosage: UNK
     Route: 042
     Dates: start: 20070527, end: 20070530
  88. NOVALGIN [Suspect]
     Dosage: 2.5 G IN THE MORNING, 1 G IN THE EVENING
     Route: 042
     Dates: start: 20070523, end: 20070524
  89. CONTRAST MEDIA [Suspect]
     Indication: COMPUTERISED TOMOGRAM
     Dosage: UNK
     Route: 042
     Dates: start: 20070513, end: 20070522
  90. RINGER LOSUNG [Suspect]
     Indication: SUPPLEMENTATION THERAPY
     Dosage: UNK
     Route: 042
     Dates: start: 20070514, end: 20070514
  91. VITAMIN B6 [Suspect]
     Dosage: UNK
     Route: 042
     Dates: start: 20070523
  92. SUFENTANIL [Suspect]
     Dosage: UNK
     Route: 042
     Dates: start: 20070521, end: 20070521
  93. SUFENTANIL [Suspect]
     Dosage: UNK
     Route: 042
     Dates: start: 20070523, end: 20070602
  94. ZIENAM [Suspect]
     Indication: PANCREATITIS
     Dosage: 500 MG, 4X/DAY
     Route: 042
     Dates: start: 20070516, end: 20070531
  95. VANCOMYCIN [Suspect]
     Indication: PANCREATITIS
     Dosage: UNK
     Route: 042
     Dates: start: 20070523, end: 20070603
  96. CATAPRESAN [Suspect]
     Dosage: UNK
     Route: 042
     Dates: start: 20070606, end: 20070610
  97. BRONCHO SPRAY [Suspect]
     Indication: DYSPNOEA
     Dosage: THRICE DAILY
     Route: 055
     Dates: start: 20070523
  98. NEPRESOL [Suspect]
     Indication: HYPERTENSION
     Dosage: UNK
     Route: 042
     Dates: start: 20070529, end: 20070531
  99. METOCLOPRAMIDE [Suspect]
     Indication: NAUSEA
     Dosage: 30 GTT, 1X/DAY
     Route: 048
     Dates: start: 20070606, end: 20070609
  100. CLONT [Concomitant]
     Indication: PANCREATITIS
     Dosage: 500 MG, 2X/DAY
     Route: 042
     Dates: start: 20070513, end: 20070516
  101. TUTOFUSIN BG [Concomitant]
     Dosage: 500 MG, UNK
     Route: 042
     Dates: start: 20070518, end: 20070522
  102. SUPRARENIN [Concomitant]
     Indication: CARDIAC ARREST
     Dosage: UNK
     Route: 042
     Dates: start: 20070521, end: 20070521
  103. BELOC ZOK [Concomitant]
     Indication: HYPERTENSION
     Dosage: 5 MG, 1X/DAY
     Route: 048
     Dates: start: 20070525, end: 20070525
  104. ATOSIL [Concomitant]
     Indication: ALCOHOL WITHDRAWAL SYNDROME
     Dosage: UNK
     Route: 042
     Dates: start: 20070609, end: 20070610

REACTIONS (2)
  - STEVENS-JOHNSON SYNDROME [None]
  - TOXIC EPIDERMAL NECROLYSIS [None]
